FAERS Safety Report 23697425 (Version 1)
Quarter: 2024Q2

REPORT INFORMATION
  Report Type: Spontaneous
  Country: GB (occurrence: GB)
  Receive Date: 20240402
  Receipt Date: 20240402
  Transmission Date: 20240715
  Serious: Yes (Hospitalization)
  Sender: FDA-Public Use
  Company Number: GB-MYLANLABS-2024M1015528

PATIENT
  Age: 68 Year
  Sex: Male

DRUGS (5)
  1. CLOZARIL [Suspect]
     Active Substance: CLOZAPINE
     Indication: Schizophrenia
     Dosage: 12.5 MILLIGRAM, BID
     Route: 048
     Dates: start: 20240129
  2. CLOZARIL [Suspect]
     Active Substance: CLOZAPINE
     Dosage: 25 MILLIGRAM, BID
     Route: 048
     Dates: end: 20240214
  3. CLOZARIL [Suspect]
     Active Substance: CLOZAPINE
     Dosage: UNK
     Route: 048
     Dates: start: 20240319, end: 20240325
  4. OLANZAPINE [Concomitant]
     Active Substance: OLANZAPINE
     Dosage: UNK
     Route: 065
  5. HALOPERIDOL [Concomitant]
     Active Substance: HALOPERIDOL
     Dosage: 1.5 MILLIGRAM, BID
     Route: 065

REACTIONS (3)
  - Pneumonia [Recovered/Resolved]
  - Malaise [Unknown]
  - Infection [Unknown]

NARRATIVE: CASE EVENT DATE: 20240211
